FAERS Safety Report 7290465-2 (Version None)
Quarter: 2011Q1

REPORT INFORMATION
  Report Type: 
  Country: None (occurrence: None)
  Receive Date: 20110214
  Receipt Date: 20110211
  Transmission Date: 20110831
  Serious: No
  Sender: FDA-Public Use
  Company Number: US-PFIZER INC-2011031592

PATIENT
  Sex: Female
  Weight: 109 kg

DRUGS (3)
  1. TRAZODONE [Concomitant]
     Indication: DEPRESSION
     Dosage: 200 MG, 1X/DAY
     Route: 048
  2. EFFEXOR XR [Suspect]
     Indication: DEPRESSION
     Dosage: 75 MG, 1X/DAY
     Route: 048
     Dates: start: 20070101
  3. LEVOTHYROXINE [Concomitant]
     Indication: THYROIDECTOMY
     Dosage: 0.125 MG, 1X/DAY

REACTIONS (5)
  - SOMNOLENCE [None]
  - CONSTIPATION [None]
  - INCREASED APPETITE [None]
  - ASTHENIA [None]
  - DIZZINESS [None]
